FAERS Safety Report 18734998 (Version 1)
Quarter: 2021Q1

REPORT INFORMATION
  Report Type: Spontaneous
  Country: IR (occurrence: IR)
  Receive Date: 20210113
  Receipt Date: 20210113
  Transmission Date: 20210419
  Serious: Yes (Hospitalization)
  Sender: FDA-Public Use
  Company Number: IR-LUPIN PHARMACEUTICALS INC.-2020-11763

PATIENT
  Age: 30 Year
  Sex: Female

DRUGS (9)
  1. ASPIRINE [Suspect]
     Active Substance: ASPIRIN
     Indication: PRODUCT USED FOR UNKNOWN INDICATION
     Dosage: 80 MILLIGRAM
     Route: 065
  2. FENOFIBRATE. [Suspect]
     Active Substance: FENOFIBRATE
     Indication: PROPHYLAXIS
     Dosage: UNK, TABLET
     Route: 048
     Dates: start: 2016
  3. INSULIN [Suspect]
     Active Substance: INSULIN NOS
     Indication: HYPERGLYCAEMIA
     Dosage: UNK
     Route: 065
     Dates: start: 2016
  4. METHYLPREDNISOLONE. [Suspect]
     Active Substance: METHYLPREDNISOLONE
     Indication: NEPHROTIC SYNDROME
     Dosage: 25 MILLIGRAM, QD
     Route: 048
     Dates: start: 2016
  5. METHYLPREDNISOLONE. [Suspect]
     Active Substance: METHYLPREDNISOLONE
     Dosage: 60 MILLIGRAM, QD
     Route: 048
     Dates: start: 2016
  6. FENOFIBRATE. [Suspect]
     Active Substance: FENOFIBRATE
     Indication: BLOOD TRIGLYCERIDES INCREASED
     Dosage: 50 MILLIGRAM, TID, CAPSULE
     Route: 048
     Dates: start: 2016
  7. ENOXAPARIN [Suspect]
     Active Substance: ENOXAPARIN
     Indication: THROMBOSIS PROPHYLAXIS
     Dosage: 60 UNIT
     Route: 058
     Dates: start: 2016
  8. BETAMETHASONE. [Suspect]
     Active Substance: BETAMETHASONE
     Indication: MATERNAL THERAPY TO ENHANCE FOETAL LUNG MATURITY
     Dosage: 12 MILLIGRAM, QD, TWO DOSES
     Route: 065
     Dates: start: 2016
  9. HYDROCHLOROTHIAZIDE. [Suspect]
     Active Substance: HYDROCHLOROTHIAZIDE
     Indication: OEDEMA
     Dosage: 12.5 MILLIGRAM, QD
     Route: 065
     Dates: start: 2016

REACTIONS (1)
  - Exposure during pregnancy [Unknown]
